FAERS Safety Report 9177694 (Version 1)
Quarter: 2013Q1

REPORT INFORMATION
  Report Type: Spontaneous
  Country: US (occurrence: US)
  Receive Date: 20130321
  Receipt Date: 20130321
  Transmission Date: 20140127
  Serious: No
  Sender: FDA-Public Use
  Company Number: US-009507513-1303USA010067

PATIENT
  Age: 55 Year
  Sex: Male

DRUGS (2)
  1. PEGINTRON [Suspect]
  2. REBETOL [Suspect]

REACTIONS (1)
  - Drug ineffective [Unknown]
